FAERS Safety Report 15216368 (Version 1)
Quarter: 2018Q3

REPORT INFORMATION
  Report Type: Spontaneous
  Country: KR (occurrence: KR)
  Receive Date: 20180730
  Receipt Date: 20180730
  Transmission Date: 20181010
  Serious: Yes (Life-Threatening)
  Sender: FDA-Public Use
  Company Number: KR-ELI_LILLY_AND_COMPANY-KR201807014053

PATIENT
  Age: 58 Year
  Sex: Male

DRUGS (1)
  1. ERBITUX [Suspect]
     Active Substance: CETUXIMAB
     Indication: COLORECTAL CANCER METASTATIC
     Dosage: UNK UNK, UNKNOWN
     Route: 065

REACTIONS (2)
  - Anaphylactic reaction [Unknown]
  - Cardiac arrest [Unknown]

NARRATIVE: CASE EVENT DATE: 20180625
